FAERS Safety Report 8261573-4 (Version None)
Quarter: 2012Q2

REPORT INFORMATION
  Report Type: 
  Country: None (occurrence: None)
  Receive Date: 20120405
  Receipt Date: 20120326
  Transmission Date: 20120825
  Serious: Yes (Other)
  Sender: FDA-Public Use
  Company Number: US-PFIZER INC-2012071874

PATIENT
  Sex: Female
  Weight: 71.65 kg

DRUGS (4)
  1. OXYCONTIN [Suspect]
     Indication: CERVICOBRACHIAL SYNDROME
  2. MS CONTIN [Suspect]
  3. OXYCONTIN [Suspect]
     Indication: RESTRICTIVE PULMONARY DISEASE
  4. OXYCONTIN [Suspect]
     Indication: COMPLEX REGIONAL PAIN SYNDROME
     Dosage: 240 MG (3 TABLETS OF 80MG)  Q12H
     Route: 048
     Dates: end: 20120221

REACTIONS (5)
  - PAIN [None]
  - DRUG ABUSE [None]
  - TACHYCARDIA [None]
  - DIARRHOEA [None]
  - INTENTIONAL DRUG MISUSE [None]
